FAERS Safety Report 21714248 (Version 1)
Quarter: 2022Q4

REPORT INFORMATION
  Report Type: Spontaneous
  Country: US (occurrence: US)
  Receive Date: 20221212
  Receipt Date: 20221212
  Transmission Date: 20230113
  Serious: Yes (Other)
  Sender: FDA-Public Use
  Company Number: US-PFIZER INC-202201353203

PATIENT
  Age: 78 Year
  Sex: Female

DRUGS (1)
  1. ZITHROMAX [Suspect]
     Active Substance: AZITHROMYCIN DIHYDRATE
     Indication: Infection
     Dosage: UNK, AS NEEDED (WHEN NEEDS IT)

REACTIONS (3)
  - Drug dependence [Unknown]
  - Off label use [Unknown]
  - Infection [Unknown]
